FAERS Safety Report 12561426 (Version 3)
Quarter: 2017Q3

REPORT INFORMATION
  Report Type: Spontaneous
  Country: US (occurrence: US)
  Receive Date: 20160715
  Receipt Date: 20170901
  Transmission Date: 20171127
  Serious: Yes (Other)
  Sender: FDA-Public Use
  Company Number: US-PFIZER INC-2016341780

PATIENT
  Age: 6 Year
  Sex: Male

DRUGS (2)
  1. EPINEPHRINE. [Concomitant]
     Active Substance: EPINEPHRINE
     Indication: ANAESTHESIA
     Dosage: 2 MG/L, UNK, (2 MG OF EPINEPHRINE/L OF NORMOSOL)
     Route: 058
  2. BUPIVACAINE HCL [Suspect]
     Active Substance: BUPIVACAINE HYDROCHLORIDE
     Indication: ANAESTHESIA
     Dosage: 3 MG/KG
     Route: 058

REACTIONS (2)
  - Toxicity to various agents [Recovering/Resolving]
  - Cardiac arrest [Recovering/Resolving]
